FAERS Safety Report 5680431-2 (Version None)
Quarter: 2008Q1

REPORT INFORMATION
  Report Type: 
  Country: None (occurrence: None)
  Receive Date: 20080326
  Receipt Date: 20080312
  Transmission Date: 20080703
  Serious: Yes (Congenital Anomaly)
  Sender: FDA-Public Use
  Company Number: A0685053A

PATIENT
  Sex: Female

DRUGS (2)
  1. PAXIL CR [Suspect]
     Indication: ANXIETY
     Dosage: 25MG PER DAY
     Dates: start: 20030528, end: 20040101
  2. VITAMIN AND MINERAL PRENATAL SUPPLEMENT W/ FOLIC ACID CAP [Concomitant]

REACTIONS (12)
  - ABDOMINAL PAIN [None]
  - ABORTION SPONTANEOUS [None]
  - ANTEPARTUM HAEMORRHAGE [None]
  - BRONCHITIS [None]
  - COMPLICATION OF PREGNANCY [None]
  - DRUG EXPOSURE DURING PREGNANCY [None]
  - FUNGAL INFECTION [None]
  - HEART DISEASE CONGENITAL [None]
  - PREGNANCY [None]
  - STREPTOCOCCAL INFECTION [None]
  - VAGINAL PAIN [None]
  - VENTRICULAR SEPTAL DEFECT [None]
